FAERS Safety Report 23614129 (Version 2)
Quarter: 2024Q2

REPORT INFORMATION
  Report Type: Report from Study
  Country: US (occurrence: US)
  Receive Date: 20240310
  Receipt Date: 20240513
  Transmission Date: 20240716
  Serious: Yes (Hospitalization, Other)
  Sender: FDA-Public Use
  Company Number: US-TAKEDA-2024TUS003251

PATIENT
  Sex: Male

DRUGS (2)
  1. MARIBAVIR [Suspect]
     Active Substance: MARIBAVIR
     Indication: Cytomegalovirus infection
     Dosage: 400 MILLIGRAM, BID
     Route: 048
     Dates: start: 20230112, end: 20240425
  2. MARIBAVIR [Suspect]
     Active Substance: MARIBAVIR
     Indication: White blood cell count

REACTIONS (2)
  - Hospitalisation [Unknown]
  - Constipation [Unknown]
